FAERS Safety Report 8720662 (Version 2)
Quarter: 2012Q4

REPORT INFORMATION
  Report Type: 
  Country: US (occurrence: US)
  Receive Date: 20120813
  Receipt Date: 20120905
  Transmission Date: 20130627
  Serious: Yes (Hospitalization)
  Sender: FDA-Public Use
  Company Number: US-ROCHE-1099636

PATIENT
  Sex: Female

DRUGS (9)
  1. PEG-INTERFERON ALFA 2A [Suspect]
     Indication: HEPATITIS C
     Route: 065
     Dates: start: 20120705
  2. RIBAVIRIN [Suspect]
     Indication: HEPATITIS C
     Route: 065
     Dates: start: 20120705
  3. TELAPREVIR [Suspect]
     Indication: HEPATITIS C
     Dosage: 2 tabs
     Route: 065
     Dates: start: 20120705
  4. FLUOXETINE [Concomitant]
  5. METFORMIN [Concomitant]
  6. WARFARIN [Concomitant]
  7. TRAZODONE [Concomitant]
  8. FERROUS SULFATE [Concomitant]
  9. BISACODYL [Concomitant]

REACTIONS (4)
  - Blood iron decreased [Unknown]
  - Red blood cell count decreased [Unknown]
  - Dyspnoea [Unknown]
  - Drug dose omission [Unknown]
